FAERS Safety Report 13681461 (Version 1)
Quarter: 2017Q2

REPORT INFORMATION
  Report Type: Spontaneous
  Country: US (occurrence: US)
  Receive Date: 20170622
  Receipt Date: 20170622
  Transmission Date: 20170830
  Serious: Yes (Disabling)
  Sender: FDA-Public Use
  Company Number: None

PATIENT
  Age: 52 Year
  Sex: Male
  Weight: 103.5 kg

DRUGS (7)
  1. ESCITALOPRAM [Suspect]
     Active Substance: ESCITALOPRAM OXALATE
     Indication: ANXIETY
     Route: 048
     Dates: end: 20170616
  2. CPAP [Concomitant]
     Active Substance: DEVICE
  3. CALCIUM SUPPLEMENT [Concomitant]
     Active Substance: CALCIUM
  4. MOTRIN [Concomitant]
     Active Substance: IBUPROFEN
  5. TRAMADOL. [Concomitant]
     Active Substance: TRAMADOL
  6. MULTI-VITAMIN (NO IRON) [Concomitant]
  7. VITAMIN D SUPLLEMENT [Concomitant]

REACTIONS (4)
  - Seizure [None]
  - Paraesthesia [None]
  - Drug withdrawal syndrome [None]
  - Impaired work ability [None]

NARRATIVE: CASE EVENT DATE: 20170517
